FAERS Safety Report 4303351-4 (Version None)
Quarter: 2004Q1

REPORT INFORMATION
  Report Type: 
  Country: None (occurrence: None)
  Receive Date: 20040223
  Receipt Date: 20040213
  Transmission Date: 20041129
  Serious: Yes (Death, Hospitalization)
  Sender: FDA-Public Use
  Company Number: JP-JNJFOC-20040103409

PATIENT
  Age: 93 Year
  Sex: Male

DRUGS (12)
  1. RISPERIDONE [Suspect]
     Indication: EXCITABILITY
     Dosage: SEE IMAGE
     Route: 048
     Dates: start: 20040108, end: 20040113
  2. RISPERIDONE [Suspect]
     Indication: EXCITABILITY
     Dosage: SEE IMAGE
     Route: 048
     Dates: start: 20040113, end: 20040113
  3. TIAPRIDE HYDROCHLORIDE (TIAPRIDE HYDROHCORIDE) USNPESICIFIED [Suspect]
     Indication: EXCITABILITY
     Dosage: SEE IMAGE
     Route: 048
     Dates: start: 20020530, end: 20040108
  4. TIAPRIDE HYDROCHLORIDE (TIAPRIDE HYDROHCORIDE) USNPESICIFIED [Suspect]
     Indication: IMPULSE-CONTROL DISORDER
     Dosage: SEE IMAGE
     Route: 048
     Dates: start: 20020530, end: 20040108
  5. TIAPRIDE HYDROCHLORIDE (TIAPRIDE HYDROHCORIDE) USNPESICIFIED [Suspect]
     Indication: INSOMNIA
     Dosage: SEE IMAGE
     Route: 048
     Dates: start: 20020530, end: 20040108
  6. TIAPRIDE HYDROCHLORIDE (TIAPRIDE HYDROHCORIDE) USNPESICIFIED [Suspect]
     Indication: EXCITABILITY
     Dosage: SEE IMAGE
     Route: 048
     Dates: start: 20040109, end: 20040112
  7. TIAPRIDE HYDROCHLORIDE (TIAPRIDE HYDROHCORIDE) USNPESICIFIED [Suspect]
     Indication: IMPULSE-CONTROL DISORDER
     Dosage: SEE IMAGE
     Route: 048
     Dates: start: 20040109, end: 20040112
  8. TIAPRIDE HYDROCHLORIDE (TIAPRIDE HYDROHCORIDE) USNPESICIFIED [Suspect]
     Indication: INSOMNIA
     Dosage: SEE IMAGE
     Route: 048
     Dates: start: 20040109, end: 20040112
  9. TAMSULOSIN HYDROCHLORIDE (TAMSULOSIN HYDROCHLORIDE) [Concomitant]
  10. CHLORMADINONE ACETATE (CHLORMADINONE ACETATE) [Concomitant]
  11. PRAZOSIN HYDROCHLORIDE (PRAZOSIN HYDROCHLORIDE) [Concomitant]
  12. ETHYL ICOSAPENTATE (ETHYL ICOSAPENTATE) [Concomitant]

REACTIONS (35)
  - ABNORMAL BEHAVIOUR [None]
  - AGGRESSION [None]
  - ALANINE AMINOTRANSFERASE INCREASED [None]
  - ASPARTATE AMINOTRANSFERASE INCREASED [None]
  - BLOOD SODIUM INCREASED [None]
  - BLOOD UREA INCREASED [None]
  - C-REACTIVE PROTEIN INCREASED [None]
  - CARDIAC ARREST [None]
  - CHOKING [None]
  - DEHYDRATION [None]
  - DELIRIUM [None]
  - DEPRESSED LEVEL OF CONSCIOUSNESS [None]
  - DIZZINESS [None]
  - DRUG INTERACTION [None]
  - DYSSTASIA [None]
  - ELECTROCARDIOGRAM ABNORMAL [None]
  - EXCITABILITY [None]
  - HAEMATOCRIT DECREASED [None]
  - HAEMOPTYSIS [None]
  - INCOHERENT [None]
  - INSOMNIA [None]
  - IRRITABILITY [None]
  - MUSCLE STRAIN [None]
  - MYALGIA [None]
  - NEUROLEPTIC MALIGNANT SYNDROME [None]
  - PAIN [None]
  - PHYSICAL ASSAULT [None]
  - RED BLOOD CELL COUNT DECREASED [None]
  - RESPIRATORY ARREST [None]
  - SOMNOLENCE [None]
  - SPUTUM ABNORMAL [None]
  - TACHYCARDIA [None]
  - TRACHEAL OBSTRUCTION [None]
  - TREATMENT NONCOMPLIANCE [None]
  - URINARY INCONTINENCE [None]
